FAERS Safety Report 26208170 (Version 1)
Quarter: 2025Q4

REPORT INFORMATION
  Report Type: Spontaneous
  Country: US (occurrence: US)
  Receive Date: 20251229
  Receipt Date: 20251229
  Transmission Date: 20260117
  Serious: Yes (Hospitalization)
  Sender: MYLAN
  Company Number: US-MYLANLABS-2025M1109968

PATIENT
  Age: 53 Year
  Sex: Male

DRUGS (2)
  1. DOXYCYCLINE [Suspect]
     Active Substance: DOXYCYCLINE
     Indication: Mycoplasma infection
     Dosage: UNK
  2. CEFADROXIL [Concomitant]
     Active Substance: CEFADROXIL
     Indication: Evidence based treatment
     Dosage: UNK

REACTIONS (1)
  - Drug ineffective [Unknown]
